FAERS Safety Report 9344165 (Version 1)
Quarter: 2013Q2

REPORT INFORMATION
  Report Type: Spontaneous
  Country: TR (occurrence: TR)
  Receive Date: 20130612
  Receipt Date: 20130612
  Transmission Date: 20140414
  Serious: No
  Sender: FDA-Public Use
  Company Number: TR-NOVOPROD-380100

PATIENT
  Age: 36 Year
  Sex: Female
  Weight: 52 kg

DRUGS (8)
  1. NOVORAPID FLEXPEN [Suspect]
     Indication: GESTATIONAL DIABETES
     Dosage: 12 U, QD
     Route: 058
     Dates: start: 20130530, end: 20130531
  2. NOVORAPID FLEXPEN [Suspect]
     Dosage: 6 U, QD
     Route: 058
  3. INSULATARD HM PENFILL [Suspect]
     Indication: GESTATIONAL DIABETES
     Dosage: 16 IU, QD
     Route: 058
     Dates: start: 20130530
  4. PROLUTON [Concomitant]
     Indication: PROPHYLAXIS OF ABORTION
     Dosage: 1 INJECTION PER WEEK
     Route: 030
     Dates: start: 20130604
  5. PROGESTAN [Concomitant]
     Indication: PROPHYLAXIS OF ABORTION
     Dosage: 1X1
     Route: 048
     Dates: start: 20130604
  6. CORASPIN [Concomitant]
     Dosage: 1X1
     Route: 048
     Dates: start: 201302
  7. FOLBIOL [Concomitant]
     Dosage: 1X1
     Route: 048
     Dates: start: 201302
  8. FERRUM [Concomitant]
     Dosage: 1X1
     Route: 048
     Dates: start: 201302

REACTIONS (2)
  - Pregnancy [Recovered/Resolved]
  - No adverse event [Unknown]
